FAERS Safety Report 19233757 (Version 1)
Quarter: 2021Q2

REPORT INFORMATION
  Report Type: Other
  Country: US (occurrence: US)
  Receive Date: 20210507
  Receipt Date: 20210507
  Transmission Date: 20210717
  Serious: Yes (Other)
  Sender: FDA-Public Use
  Company Number: US-NOVA LABORATORIES LIMITED-2110320

PATIENT
  Age: 4 Year
  Sex: Female

DRUGS (3)
  1. PURIXAN [Suspect]
     Active Substance: MERCAPTOPURINE
  2. ALLOPURINOL. [Suspect]
     Active Substance: ALLOPURINOL
  3. PURIXAN [Suspect]
     Active Substance: MERCAPTOPURINE
     Indication: B PRECURSOR TYPE ACUTE LEUKAEMIA

REACTIONS (1)
  - Hypoglycaemia [Recovered/Resolved]
